FAERS Safety Report 12777805 (Version 1)
Quarter: 2016Q3

REPORT INFORMATION
  Report Type: Spontaneous
  Country: US (occurrence: US)
  Receive Date: 20160924
  Receipt Date: 20160924
  Transmission Date: 20161109
  Serious: No
  Sender: FDA-Public Use
  Company Number: US-JAZZ-2016-US-010601

PATIENT
  Sex: Female

DRUGS (50)
  1. SUDAFED [Concomitant]
     Active Substance: PSEUDOEPHEDRINE HYDROCHLORIDE
  2. WILLOW BARK [Concomitant]
  3. RHODIOLA [Concomitant]
     Active Substance: HERBALS
  4. SINGULAIR [Concomitant]
     Active Substance: MONTELUKAST SODIUM
  5. L-METHYLFOLATE CALCIUM [Concomitant]
     Active Substance: LEVOMEFOLATE CALCIUM
  6. PROBIOTIC [Concomitant]
     Active Substance: PROBIOTICS NOS
  7. MULTIVITAMINS [Concomitant]
     Active Substance: VITAMINS
  8. POTASSIUM GLUCONATE [Concomitant]
     Active Substance: POTASSIUM GLUCONATE
  9. TRAZODONE [Concomitant]
     Active Substance: TRAZODONE HYDROCHLORIDE
  10. ALLEGRA ALLERGY [Concomitant]
     Active Substance: FEXOFENADINE HYDROCHLORIDE
  11. XYREM [Suspect]
     Active Substance: SODIUM OXYBATE
     Dosage: 4.5 G, BID
     Route: 048
     Dates: start: 201408, end: 2014
  12. MALIC ACID PLUS [Concomitant]
  13. FISH OIL [Concomitant]
     Active Substance: FISH OIL
  14. PANTOPRAZOLE [Concomitant]
     Active Substance: PANTOPRAZOLE SODIUM
  15. CLARITIN [Concomitant]
     Active Substance: LORATADINE
  16. NUVIGIL [Concomitant]
     Active Substance: ARMODAFINIL
  17. CALCIUM +D [Concomitant]
     Active Substance: CALCIUM\VITAMIN D
  18. MELATONIN [Concomitant]
     Active Substance: MELATONIN
  19. SPIRIVA [Concomitant]
     Active Substance: TIOTROPIUM BROMIDE MONOHYDRATE
  20. ASTELIN [Concomitant]
     Active Substance: AZELASTINE HYDROCHLORIDE
  21. XYREM [Suspect]
     Active Substance: SODIUM OXYBATE
     Indication: NARCOLEPSY
     Dosage: 4.5 G, BID
     Route: 048
     Dates: start: 201304, end: 2013
  22. XYREM [Suspect]
     Active Substance: SODIUM OXYBATE
     Dosage: 2.25 G, BID
     Route: 048
     Dates: start: 201406, end: 201408
  23. MUCINEX [Concomitant]
     Active Substance: GUAIFENESIN
  24. GABAPENTIN. [Concomitant]
     Active Substance: GABAPENTIN
  25. COENZYME Q10 [Concomitant]
     Active Substance: UBIDECARENONE
  26. COMBIVENT [Concomitant]
     Active Substance: ALBUTEROL SULFATE\IPRATROPIUM BROMIDE
  27. FLONASE [Concomitant]
     Active Substance: FLUTICASONE PROPIONATE
  28. LATUDA [Concomitant]
     Active Substance: LURASIDONE HYDROCHLORIDE
  29. ALLERGY [Concomitant]
     Active Substance: UNSPECIFIED INGREDIENT
  30. D-RIBOSE [Concomitant]
     Active Substance: DIETARY SUPPLEMENT
  31. LYSINE [Concomitant]
     Active Substance: LYSINE
  32. VITAMIN B12 [Concomitant]
     Active Substance: CYANOCOBALAMIN
  33. VITAMIN C [Concomitant]
     Active Substance: ASCORBIC ACID
  34. HYDROCODONE [Concomitant]
     Active Substance: HYDROCODONE
  35. TEMAZEPAM. [Concomitant]
     Active Substance: TEMAZEPAM
  36. XYREM [Suspect]
     Active Substance: SODIUM OXYBATE
     Dosage: 4.5 G, BID
     Route: 048
     Dates: start: 201511
  37. HORIZANT [Concomitant]
     Active Substance: GABAPENTIN ENACARBIL
  38. ZOLOFT [Concomitant]
     Active Substance: SERTRALINE HYDROCHLORIDE
  39. ECHINACEA [Concomitant]
     Active Substance: ECHINACEA, UNSPECIFIED
  40. CLONIDINE HCL [Concomitant]
     Active Substance: CLONIDINE HYDROCHLORIDE
  41. BUSPIRONE HCL [Concomitant]
     Active Substance: BUSPIRONE HYDROCHLORIDE
  42. ADRENAL STRESS END [Concomitant]
  43. VITAMIN D [Concomitant]
     Active Substance: CHOLECALCIFEROL
  44. CARNITINE [Concomitant]
     Active Substance: CARNITINE
  45. MAGNESIUM [Concomitant]
     Active Substance: MAGNESIUM
  46. VITAMIN B COMPLEX [Concomitant]
     Active Substance: CYANOCOBALAMIN\DEXPANTHENOL\NIACINAMIDE\PYRIDOXINE HYDROCHLORIDE\RIBOFLAVIN 5^-PHOSPHATE SODIUM\THIAMINE HYDROCHLORIDE\VITAMIN B COMPLEX
  47. MELOXICAM. [Concomitant]
     Active Substance: MELOXICAM
  48. SYMBICORT [Concomitant]
     Active Substance: BUDESONIDE\FORMOTEROL FUMARATE DIHYDRATE
  49. CYMBALTA [Concomitant]
     Active Substance: DULOXETINE HYDROCHLORIDE
  50. GLUCOSAMINE CHONDROITIN [Concomitant]
     Active Substance: CHONDROITIN SULFATE (BOVINE)\GLUCOSAMINE HYDROCHLORIDE

REACTIONS (1)
  - Anxiety [Not Recovered/Not Resolved]
